FAERS Safety Report 8231877-X (Version None)
Quarter: 2012Q1

REPORT INFORMATION
  Report Type: 
  Country: None (occurrence: None)
  Receive Date: 20120323
  Receipt Date: 20120313
  Transmission Date: 20120608
  Serious: Yes (Hospitalization, Other)
  Sender: FDA-Public Use
  Company Number: US-JNJFOC-20120307198

PATIENT
  Sex: Male

DRUGS (4)
  1. PREDNISONE TAB [Concomitant]
     Indication: PROSTATE CANCER
     Route: 065
  2. ZYTIGA [Suspect]
     Indication: PROSTATE CANCER
     Route: 048
  3. ZYTIGA [Suspect]
     Route: 048
  4. KETOCONAZOLE [Suspect]
     Indication: PRODUCT USED FOR UNKNOWN INDICATION
     Route: 065

REACTIONS (4)
  - BLOOD TEST ABNORMAL [None]
  - DIZZINESS [None]
  - DRUG DOSE OMISSION [None]
  - HOSPITALISATION [None]
